FAERS Safety Report 4981028-X (Version None)
Quarter: 2006Q2

REPORT INFORMATION
  Report Type: 
  Country: None (occurrence: None)
  Receive Date: 20060421
  Receipt Date: 20060410
  Transmission Date: 20061013
  Serious: Yes (Hospitalization, Other)
  Sender: FDA-Public Use
  Company Number: 2005BI015513

PATIENT
  Age: 37 Year
  Sex: Male

DRUGS (3)
  1. AVONEX [Suspect]
     Indication: MULTIPLE SCLEROSIS
     Dosage: 30 UG;QW;IM
     Route: 030
     Dates: start: 19990701
  2. AVONEX [Suspect]
     Indication: MULTIPLE SCLEROSIS
     Dosage: 30 UG;QW;IM
     Route: 030
     Dates: end: 20050613
  3. AVONEX [Suspect]
     Indication: MULTIPLE SCLEROSIS
     Dosage: 30 UG;QW;IM
     Route: 030
     Dates: start: 20050817, end: 20060317

REACTIONS (13)
  - ABSCESS [None]
  - ANAEMIA [None]
  - DEHYDRATION [None]
  - GASTRIC DISORDER [None]
  - LOSS OF CONSCIOUSNESS [None]
  - MULTIPLE SCLEROSIS RELAPSE [None]
  - PEPTIC ULCER PERFORATION [None]
  - PERFORATED ULCER [None]
  - PNEUMONIA [None]
  - POST PROCEDURAL COMPLICATION [None]
  - STRESS [None]
  - THROMBOSIS [None]
  - ULCER HAEMORRHAGE [None]
